FAERS Safety Report 8165415-7 (Version None)
Quarter: 2012Q1

REPORT INFORMATION
  Report Type: 
  Country: None (occurrence: None)
  Receive Date: 20120227
  Receipt Date: 20120217
  Transmission Date: 20120608
  Serious: Yes (Hospitalization)
  Sender: FDA-Public Use
  Company Number: US-BAYER-2011-091703

PATIENT
  Age: 24 Year
  Sex: Female
  Weight: 102.4 kg

DRUGS (2)
  1. YASMIN [Suspect]
     Indication: ACNE
     Dosage: UNK
     Dates: start: 20020101, end: 20050101
  2. YAZ [Suspect]
     Indication: ACNE
     Dosage: UNK
     Dates: start: 20020101, end: 20050101

REACTIONS (8)
  - CHOLELITHIASIS [None]
  - INJURY [None]
  - PAIN [None]
  - ANXIETY [None]
  - ANHEDONIA [None]
  - EMOTIONAL DISTRESS [None]
  - GENERAL PHYSICAL HEALTH DETERIORATION [None]
  - GALLBLADDER DISORDER [None]
